FAERS Safety Report 9705158 (Version 1)
Quarter: 2013Q4

REPORT INFORMATION
  Report Type: Spontaneous
  Country: US (occurrence: US)
  Receive Date: 20131122
  Receipt Date: 20131122
  Transmission Date: 20140711
  Serious: Yes (Other)
  Sender: FDA-Public Use
  Company Number: US-ABBVIE-13P-163-1171730-00

PATIENT
  Age: 82 Year
  Sex: Female

DRUGS (6)
  1. SYNTHROID [Suspect]
     Indication: PRODUCT USED FOR UNKNOWN INDICATION
  2. AMLODIPINE [Suspect]
     Indication: PRODUCT USED FOR UNKNOWN INDICATION
  3. B-12 [Suspect]
     Indication: ANAEMIA
     Route: 050
  4. ALBUTEROL [Concomitant]
     Indication: ASTHMA
  5. UNKNOWN INHALER MEDICATIONS [Concomitant]
     Indication: ASTHMA
  6. MARCAINE [Concomitant]
     Indication: BIOPSY

REACTIONS (7)
  - Throat cancer [Unknown]
  - Dyspnoea [Unknown]
  - B-cell lymphoma [Unknown]
  - Lymphadenopathy [Unknown]
  - Anaemia [Unknown]
  - Feeling abnormal [Unknown]
  - Productive cough [Unknown]
